FAERS Safety Report 9238280 (Version 2)
Quarter: 2013Q3

REPORT INFORMATION
  Report Type: Spontaneous
  Country: US (occurrence: None)
  Receive Date: 20130415
  Receipt Date: 20130715
  Transmission Date: 20140515
  Serious: Yes (Hospitalization)
  Sender: FDA-Public Use
  Company Number: ACO_31863_2012

PATIENT
  Age: 64 Year
  Sex: Female
  Weight: 63.5 kg

DRUGS (3)
  1. AMPYRA (DALFAMPRIDINE) TABLET, 10MG [Suspect]
     Indication: GAIT DISTURBANCE
     Dates: start: 201201
  2. EFFEXOR (VENLAFAXINE HYDROCHLORIDE) UNKNOWN [Concomitant]
  3. BUDESONIDE (BUDESONIDE) [Concomitant]

REACTIONS (5)
  - Myocardial infarction [None]
  - Cardiac failure congestive [None]
  - Confusional state [None]
  - Constipation [None]
  - Insomnia [None]
